FAERS Safety Report 10444530 (Version 1)
Quarter: 2014Q3

REPORT INFORMATION
  Report Type: Spontaneous
  Country: FR (occurrence: FR)
  Receive Date: 20140910
  Receipt Date: 20140910
  Transmission Date: 20150326
  Serious: Yes (Hospitalization)
  Sender: FDA-Public Use
  Company Number: FR-SA-2014SA122384

PATIENT
  Age: 71 Year
  Sex: Male

DRUGS (17)
  1. CLOPIDOGREL [Concomitant]
     Active Substance: CLOPIDOGREL BISULFATE
     Dosage: 1 TABLET ON EVENING
  2. ATORVASTATIN [Concomitant]
     Active Substance: ATORVASTATIN
     Dosage: 1 TABLET ON EVENING
  3. ROVAMYCIN [Suspect]
     Active Substance: SPIRAMYCIN
     Indication: LUNG INFECTION
     Route: 048
     Dates: end: 20140819
  4. LERCANIDIPINE [Concomitant]
     Active Substance: LERCANIDIPINE
     Dosage: 1 TABLET ON EVENING
  5. OXAZEPAM. [Concomitant]
     Active Substance: OXAZEPAM
  6. LOVENOX [Suspect]
     Active Substance: ENOXAPARIN SODIUM
     Indication: PROPHYLAXIS
     Route: 065
     Dates: start: 20140809
  7. FLUTICASONE PROPIONATE/SALMETEROL [Concomitant]
     Active Substance: FLUTICASONE PROPIONATE\SALMETEROL XINAFOATE
  8. TRAMADOL [Concomitant]
     Active Substance: TRAMADOL
  9. TIOTROPIUM [Concomitant]
     Active Substance: TIOTROPIUM
     Dosage: ONCE AT MIDDAY
  10. LASILIX [Suspect]
     Active Substance: FUROSEMIDE
     Indication: ACUTE PULMONARY OEDEMA
     Route: 042
     Dates: start: 20140811
  11. ATENOLOL. [Concomitant]
     Active Substance: ATENOLOL
     Dosage: 2 TABLETS ON MORNING
  12. CEFTRIAXONE. [Suspect]
     Active Substance: CEFTRIAXONE
     Indication: LUNG INFECTION
     Route: 042
     Dates: start: 20140809, end: 20140819
  13. LASILIX [Suspect]
     Active Substance: FUROSEMIDE
     Indication: ACUTE PULMONARY OEDEMA
     Route: 048
  14. CANDESARTAN CILEXETIL/HYDROCHLOROTHIAZIDE [Concomitant]
     Active Substance: CANDESARTAN CILEXETIL\HYDROCHLOROTHIAZIDE
     Dosage: 1 TABLET ON MORNING
  15. LORMETAZEPAM [Concomitant]
     Active Substance: LORMETAZEPAM
     Dosage: 1 TABLET ON EVENING
  16. FLUOXETINE [Concomitant]
     Active Substance: FLUOXETINE\FLUOXETINE HYDROCHLORIDE
     Dosage: 1 TABLET ON MORNING
  17. ROVAMYCIN [Suspect]
     Active Substance: SPIRAMYCIN
     Indication: LUNG INFECTION
     Route: 042
     Dates: start: 20140809

REACTIONS (3)
  - Leukopenia [Not Recovered/Not Resolved]
  - Neutropenia [Not Recovered/Not Resolved]
  - Anaemia [Not Recovered/Not Resolved]

NARRATIVE: CASE EVENT DATE: 20140815
